FAERS Safety Report 6295983-1 (Version None)
Quarter: 2009Q3

REPORT INFORMATION
  Report Type: 
  Country: None (occurrence: None)
  Receive Date: 20090804
  Receipt Date: 20090727
  Transmission Date: 20100115
  Serious: Yes (Other)
  Sender: FDA-Public Use
  Company Number: GB-ASTRAZENECA-2009GB01401

PATIENT
  Age: 21 Year
  Sex: Female

DRUGS (3)
  1. SEROQUEL [Suspect]
     Indication: BIPOLAR DISORDER
     Dosage: 100 + 150 MG
     Route: 048
     Dates: start: 20090319, end: 20090401
  2. SEROQUEL [Suspect]
     Route: 048
     Dates: start: 20090401
  3. SEROQUEL [Suspect]
     Route: 048

REACTIONS (4)
  - CHEST PAIN [None]
  - DYSPNOEA EXERTIONAL [None]
  - ELECTROCARDIOGRAM ABNORMAL [None]
  - PAIN [None]
